FAERS Safety Report 9329223 (Version 1)
Quarter: 2013Q2

REPORT INFORMATION
  Report Type: Spontaneous
  Country: US (occurrence: US)
  Receive Date: 20130604
  Receipt Date: 20130604
  Transmission Date: 20140414
  Serious: No
  Sender: FDA-Public Use
  Company Number: US-SANOFI-AVENTIS-2012SA075552

PATIENT
  Age: 69 Year
  Sex: Female

DRUGS (7)
  1. SOLOSTAR [Suspect]
     Indication: TYPE 2 DIABETES MELLITUS
     Dates: start: 20120410
  2. HUMALOG [Concomitant]
     Indication: DIABETES MELLITUS
     Dosage: DOSE:10 UNIT(S)
     Dates: start: 201204
  3. METFORMIN [Concomitant]
     Indication: DIABETES MELLITUS
     Dates: start: 201011
  4. PLAVIX [Concomitant]
     Indication: THROMBOSIS
     Dates: start: 201204
  5. LISINOPRIL [Concomitant]
     Indication: HYPERTENSION
     Dates: start: 201011
  6. AGGRENOX [Concomitant]
     Indication: THROMBOSIS
     Dosage: 25/200 MG
     Dates: start: 201204
  7. LANTUS SOLOSTAR [Suspect]
     Indication: TYPE 2 DIABETES MELLITUS
     Dosage: DOSE:30 UNIT(S)
     Route: 058
     Dates: start: 20120410

REACTIONS (1)
  - Visual impairment [Not Recovered/Not Resolved]
